FAERS Safety Report 11501919 (Version 1)
Quarter: 2015Q3

REPORT INFORMATION
  Report Type: Spontaneous
  Country: US (occurrence: US)
  Receive Date: 20150914
  Receipt Date: 20150914
  Transmission Date: 20151125
  Serious: Yes (Hospitalization, Congenital Anomaly, Other)
  Sender: FDA-Public Use
  Company Number: US-PFIZER INC-2015303400

PATIENT
  Sex: Male
  Weight: 4 kg

DRUGS (2)
  1. PRENATAL VITAMINS [Concomitant]
     Active Substance: VITAMINS
     Dosage: UNK
     Route: 064
  2. ZOLOFT [Suspect]
     Active Substance: SERTRALINE HYDROCHLORIDE
     Dosage: 25 MG, UNK
     Route: 064

REACTIONS (6)
  - Neonatal respiratory distress syndrome [Recovering/Resolving]
  - Congenital hypothyroidism [Unknown]
  - Maternal exposure during pregnancy [Unknown]
  - Patent ductus arteriosus [Recovering/Resolving]
  - Persistent foetal circulation [Recovered/Resolved]
  - Atrial septal defect [Unknown]

NARRATIVE: CASE EVENT DATE: 20070914
